FAERS Safety Report 5897651-4 (Version None)
Quarter: 2008Q3

REPORT INFORMATION
  Report Type: 
  Country: None (occurrence: None)
  Receive Date: 20080925
  Receipt Date: 20080916
  Transmission Date: 20090109
  Serious: Yes (Other)
  Sender: FDA-Public Use
  Company Number: US-ROCHE-586665

PATIENT
  Sex: Female
  Weight: 60.3 kg

DRUGS (3)
  1. CAPECITABINE [Suspect]
     Dosage: THREE TABLETS PER DAY, A.M. AND P.M.
     Route: 065
     Dates: start: 20080715, end: 20080901
  2. M.V.I. [Concomitant]
  3. SYNTHROID [Concomitant]

REACTIONS (1)
  - METASTASES TO BONE [None]
